FAERS Safety Report 20795436 (Version 2)
Quarter: 2022Q2

REPORT INFORMATION
  Report Type: Spontaneous
  Country: CH (occurrence: CH)
  Receive Date: 20220506
  Receipt Date: 20220520
  Transmission Date: 20220721
  Serious: Yes (Other)
  Sender: FDA-Public Use
  Company Number: CH-Fresenius Kabi-FK202205103

PATIENT
  Age: 21 Year
  Sex: Female

DRUGS (1)
  1. ROPIVACAINE [Suspect]
     Active Substance: ROPIVACAINE
     Indication: Product used for unknown indication
     Dosage: 20 ML OF 0.75 PERCENT (150 MG, TOTAL DOSE)
     Route: 065

REACTIONS (3)
  - Incorrect route of product administration [Unknown]
  - Generalised tonic-clonic seizure [Recovered/Resolved]
  - Tachycardia [Unknown]
